FAERS Safety Report 25664323 (Version 2)
Quarter: 2025Q4

REPORT INFORMATION
  Report Type: Report from Study
  Country: US (occurrence: US)
  Receive Date: 20250811
  Receipt Date: 20251231
  Transmission Date: 20260118
  Serious: No
  Sender: PFIZER
  Company Number: US-PFIZER INC-202500159761

PATIENT
  Age: 77 Year
  Sex: Female

DRUGS (11)
  1. IBRANCE [Suspect]
     Active Substance: PALBOCICLIB
     Indication: Breast cancer female
     Dosage: 125 MG, CYCLIC (125 MG TAKE 1 TABLET ONCE DAILY ON DAYS 1-21 EVERY 28 DAYS)
     Route: 048
     Dates: start: 20230201
  2. FLUOCINOLONE ACET [Concomitant]
     Dosage: UNK (15 GM)
  3. BIOTIN [Concomitant]
     Active Substance: BIOTIN
     Dosage: UNK
  4. CLOBETASOL PROPION [Concomitant]
     Dosage: UNK (15 GM)
  5. TYLENOL [Concomitant]
     Active Substance: ACETAMINOPHEN
     Dosage: UNK (LIQUID GEL)
  6. BENADRYL [Concomitant]
     Active Substance: DIPHENHYDRAMINE HYDROCHLORIDE
     Indication: Hypersensitivity
     Dosage: UNK (ALLERGY ULTRA TABS)
  7. LETROZOLE [Concomitant]
     Active Substance: LETROZOLE
     Dosage: UNK
  8. ROSUVASTATIN [Concomitant]
     Active Substance: ROSUVASTATIN
     Dosage: UNK
  9. CHOLECALCIFEROL [Concomitant]
     Active Substance: CHOLECALCIFEROL
     Dosage: UNK (SOFTGELS)
  10. XGEVA [Concomitant]
     Active Substance: DENOSUMAB
     Dosage: 1.7 ML
  11. CALCIUM\ERGOCALCIFEROL [Concomitant]
     Active Substance: CALCIUM\ERGOCALCIFEROL
     Dosage: UNK (SOFTGELS)

REACTIONS (6)
  - Dry skin [Not Recovered/Not Resolved]
  - Alopecia [Not Recovered/Not Resolved]
  - Onychoclasis [Not Recovered/Not Resolved]
  - Fatigue [Not Recovered/Not Resolved]
  - Red blood cell count decreased [Not Recovered/Not Resolved]
  - White blood cell count decreased [Not Recovered/Not Resolved]
